FAERS Safety Report 8839462 (Version 1)
Quarter: 2012Q4

REPORT INFORMATION
  Report Type: Spontaneous
  Country: US (occurrence: None)
  Receive Date: 20121012
  Receipt Date: 20121012
  Transmission Date: 20130627
  Serious: Yes (Other)
  Sender: FDA-Public Use
  Company Number: None

PATIENT
  Age: 53 Year
  Sex: Male
  Weight: 90.72 kg

DRUGS (2)
  1. AFRIN [Suspect]
     Indication: HEAD COLD
     Dates: start: 20121004, end: 20121006
  2. AFRIN [Concomitant]

REACTIONS (2)
  - Anosmia [None]
  - Ageusia [None]
